FAERS Safety Report 9470486 (Version 5)
Quarter: 2014Q2

REPORT INFORMATION
  Report Type: Report from Study
  Country: US (occurrence: US)
  Receive Date: 20130822
  Receipt Date: 20140623
  Transmission Date: 20141212
  Serious: Yes (Hospitalization)
  Sender: FDA-Public Use
  Company Number: US-SANOFI-AVENTIS-2013SA042746

PATIENT
  Age: 51 Year
  Sex: Female
  Weight: 127.45 kg

DRUGS (11)
  1. AUBAGIO [Suspect]
     Indication: MULTIPLE SCLEROSIS
     Route: 048
     Dates: start: 20130419
  2. LISINOPRIL [Concomitant]
     Indication: BLOOD PRESSURE
     Dates: start: 20130406
  3. IBUPROFEN [Concomitant]
     Indication: HEADACHE
     Dates: start: 20130309
  4. CITALOPRAM [Concomitant]
     Indication: DEPRESSION
     Dates: start: 20130406
  5. SULFAMETHOXAZOLE [Concomitant]
     Indication: CYSTITIS
     Dates: start: 20130423
  6. SULFAMETHOXAZOLE [Concomitant]
     Indication: KIDNEY INFECTION
     Dates: start: 20130423
  7. TRIMETHOPRIM [Concomitant]
     Indication: PAIN
     Dates: start: 20130309
  8. TRIMETHOPRIM [Concomitant]
     Indication: NECROSIS
     Dates: start: 20130309
  9. TETRACAINE [Concomitant]
  10. MELATONIN [Concomitant]
     Indication: SLEEP DISORDER
     Dates: start: 20130406
  11. CYCLOBENZAPRINE [Concomitant]
     Indication: MUSCLE SPASMS

REACTIONS (8)
  - Multiple sclerosis relapse [Recovering/Resolving]
  - Optic neuropathy [Recovering/Resolving]
  - Tremor [Recovering/Resolving]
  - Pain [Recovering/Resolving]
  - Headache [Recovered/Resolved]
  - Nausea [Recovering/Resolving]
  - Diarrhoea [Recovered/Resolved]
  - Musculoskeletal pain [Recovering/Resolving]
